FAERS Safety Report 22925930 (Version 2)
Quarter: 2023Q4

REPORT INFORMATION
  Report Type: Spontaneous
  Country: JP (occurrence: JP)
  Receive Date: 20230908
  Receipt Date: 20231003
  Transmission Date: 20240110
  Serious: Yes (Hospitalization, Other)
  Sender: FDA-Public Use
  Company Number: JP-GLAXOSMITHKLINE-JP2023JPN120552

PATIENT

DRUGS (2)
  1. VALTREX [Suspect]
     Active Substance: VALACYCLOVIR HYDROCHLORIDE
     Indication: Herpes zoster
     Dosage: 1000 MG, TID
  2. ZOVIRAX [Suspect]
     Active Substance: ACYCLOVIR
     Dosage: 125 MG, QD

REACTIONS (6)
  - Toxic encephalopathy [Unknown]
  - Altered state of consciousness [Recovered/Resolved]
  - Hypophagia [Unknown]
  - Renal impairment [Unknown]
  - Decreased appetite [Unknown]
  - Prescribed overdose [Unknown]
